FAERS Safety Report 7263115-9 (Version None)
Quarter: 2011Q1

REPORT INFORMATION
  Report Type: 
  Country: None (occurrence: None)
  Receive Date: 20110130
  Receipt Date: 20101012
  Transmission Date: 20110831
  Serious: No
  Sender: FDA-Public Use
  Company Number: US-ABBOTT-10P-163-0677600-00

PATIENT
  Age: 45 Year
  Sex: Female

DRUGS (1)
  1. HUMIRA [Suspect]
     Indication: CROHN'S DISEASE
     Dates: start: 20090301, end: 20100301

REACTIONS (5)
  - CONTUSION [None]
  - OEDEMA PERIPHERAL [None]
  - FEELING HOT [None]
  - WOUND [None]
  - ERYTHEMA [None]
